FAERS Safety Report 14513324 (Version 1)
Quarter: 2018Q1

REPORT INFORMATION
  Report Type: Spontaneous
  Country: US (occurrence: US)
  Receive Date: 20180208
  Receipt Date: 20180208
  Transmission Date: 20180509
  Serious: Yes (Other)
  Sender: FDA-Public Use
  Company Number: None

PATIENT
  Age: 34 Year
  Sex: Female
  Weight: 63.9 kg

DRUGS (3)
  1. MISOPROSTOL. [Suspect]
     Active Substance: MISOPROSTOL
     Indication: ANEMBRYONIC GESTATION
     Dates: start: 20180120, end: 20180120
  2. VITAMIN D3 [Concomitant]
     Active Substance: CHOLECALCIFEROL
  3. PRE NATAL VITAMINS [Concomitant]
     Active Substance: VITAMINS

REACTIONS (5)
  - Thirst [None]
  - Chromaturia [None]
  - Dry mouth [None]
  - Dehydration [None]
  - Dysuria [None]

NARRATIVE: CASE EVENT DATE: 20180120
